FAERS Safety Report 10034824 (Version 1)
Quarter: 2014Q1

REPORT INFORMATION
  Report Type: Report from Study
  Country: ES (occurrence: ES)
  Receive Date: 20140325
  Receipt Date: 20140325
  Transmission Date: 20141002
  Serious: Yes (Other)
  Sender: FDA-Public Use
  Company Number: ES-VERTEX PHARMACEUTICALS INC-2014-001468

PATIENT
  Sex: 0

DRUGS (1)
  1. TELAPREVIR [Suspect]
     Indication: HEPATITIS C
     Dosage: UNK
     Route: 065

REACTIONS (9)
  - Infection [Unknown]
  - Depression [Unknown]
  - Neutropenia [Unknown]
  - Hyperlipidaemia [Unknown]
  - Anaemia [Unknown]
  - Condition aggravated [Unknown]
  - Anorectal disorder [Unknown]
  - Gastrointestinal disorder [Unknown]
  - Skin reaction [Unknown]
